FAERS Safety Report 8282382-6 (Version None)
Quarter: 2012Q2

REPORT INFORMATION
  Report Type: 
  Country: None (occurrence: None)
  Receive Date: 20120413
  Receipt Date: 20120412
  Transmission Date: 20120825
  Serious: No
  Sender: FDA-Public Use
  Company Number: US-TEVA-332985USA

PATIENT
  Sex: Female
  Weight: 79.904 kg

DRUGS (2)
  1. COPAXONE [Suspect]
     Indication: MULTIPLE SCLEROSIS
     Route: 058
     Dates: start: 20111026
  2. ORAL CONTRACEPTIVE NOS [Concomitant]

REACTIONS (6)
  - BACTERIAL INFECTION [None]
  - VIRAL INFECTION [None]
  - INFECTIOUS MONONUCLEOSIS [None]
  - URINARY TRACT INFECTION [None]
  - ANAEMIA [None]
  - WEIGHT INCREASED [None]
